FAERS Safety Report 7656842-2 (Version None)
Quarter: 2011Q3

REPORT INFORMATION
  Report Type: 
  Country: None (occurrence: None)
  Receive Date: 20110802
  Receipt Date: 20110721
  Transmission Date: 20111222
  Serious: Yes (Other)
  Sender: FDA-Public Use
  Company Number: GER/UKI/10/0013537

PATIENT
  Age: 72 Year
  Sex: Female

DRUGS (2)
  1. FUROSEMIDE [Concomitant]
  2. OMEPRAZOLE [Suspect]
     Indication: PEPTIC ULCER

REACTIONS (5)
  - MUSCLE SPASMS [None]
  - BLOOD PARATHYROID HORMONE INCREASED [None]
  - HYPOMAGNESAEMIA [None]
  - PARAESTHESIA [None]
  - HYPOCALCAEMIA [None]
